FAERS Safety Report 7877011-7 (Version None)
Quarter: 2011Q4

REPORT INFORMATION
  Report Type: 
  Country: None (occurrence: None)
  Receive Date: 20111031
  Receipt Date: 20110831
  Transmission Date: 20120403
  Serious: No
  Sender: FDA-Public Use
  Company Number: US-ABBOTT-11P-163-0850873-00

PATIENT
  Sex: Male
  Weight: 86.26 kg

DRUGS (4)
  1. NORVASC [Concomitant]
     Indication: PRODUCT USED FOR UNKNOWN INDICATION
     Route: 048
  2. COZAAR [Concomitant]
     Indication: PRODUCT USED FOR UNKNOWN INDICATION
     Route: 048
  3. CREON [Suspect]
     Indication: STEATORRHOEA
  4. CREON [Suspect]
     Indication: PANCREATIC ENZYME ABNORMALITY
     Dosage: TAKES TOTAL DOSE OF 12,000
     Route: 048
     Dates: end: 20110829

REACTIONS (4)
  - DIARRHOEA [None]
  - DRUG INEFFECTIVE [None]
  - GOUT [None]
  - JOINT SWELLING [None]
